FAERS Safety Report 5514520-X (Version None)
Quarter: 2007Q4

REPORT INFORMATION
  Report Type: 
  Country: None (occurrence: None)
  Receive Date: 20071113
  Receipt Date: 20071107
  Transmission Date: 20080405
  Serious: Yes (Death)
  Sender: FDA-Public Use
  Company Number: US-BRISTOL-MYERS SQUIBB COMPANY-13940051

PATIENT
  Age: 40 Year
  Sex: Female
  Weight: 90 kg

DRUGS (14)
  1. ORENCIA [Suspect]
     Indication: RHEUMATOID ARTHRITIS
     Route: 042
     Dates: start: 20070903, end: 20070917
  2. LASIX [Concomitant]
     Route: 048
     Dates: start: 20070607
  3. DIAZEPAM [Concomitant]
     Indication: ANXIETY
     Route: 048
  4. DIAZEPAM [Concomitant]
     Indication: MUSCLE SPASMS
     Route: 048
  5. ENBREL [Concomitant]
     Route: 058
  6. FOLIC ACID [Concomitant]
     Dosage: 1 DOSAGE FORM = 1MG TAB
     Route: 048
     Dates: start: 20070426
  7. RISPERDAL [Concomitant]
     Dosage: 1 DOSAGE FORM = 1 MG TAB
     Dates: start: 20070426
  8. ZANAFLEX [Concomitant]
     Dates: start: 20070426
  9. METHOTREXATE [Concomitant]
     Indication: ARTHRITIS
     Dosage: 1 DOSAGE FORM = 2.5 MG TABS
     Dates: start: 20070426
  10. TRAZODONE HCL [Concomitant]
     Route: 048
     Dates: start: 20070426
  11. SYNTHROID [Concomitant]
     Dates: start: 20061122, end: 20061122
  12. METHOCARBAMOL [Concomitant]
     Dates: start: 20061122
  13. CYMBALTA [Concomitant]
     Dates: start: 20060912
  14. LYRICA [Concomitant]
     Dates: start: 20060912

REACTIONS (1)
  - DRUG DEPENDENCE [None]
